FAERS Safety Report 9128992 (Version 1)
Quarter: 2013Q1

REPORT INFORMATION
  Report Type: Report from Study
  Country: GB (occurrence: GB)
  Receive Date: 20130228
  Receipt Date: 20130228
  Transmission Date: 20140127
  Serious: Yes (Death)
  Sender: FDA-Public Use
  Company Number: GB-ROCHE-1196211

PATIENT
  Sex: Female
  Weight: 54 kg

DRUGS (2)
  1. RITUXIMAB [Suspect]
     Indication: RHEUMATOID ARTHRITIS
     Dosage: DATE OF MOST RECENT DOSE PRIOR TO SAE WAS ON 28/JUL/2009
     Route: 065
     Dates: start: 20090714
  2. PENICILLAMINE [Concomitant]

REACTIONS (2)
  - Obstructive airways disorder [Fatal]
  - Bronchiolitis [Fatal]
